FAERS Safety Report 11433083 (Version 2)
Quarter: 2015Q3

REPORT INFORMATION
  Report Type: Spontaneous
  Country: JP (occurrence: None)
  Receive Date: 20150827
  Receipt Date: 20150914
  Transmission Date: 20151125
  Serious: Yes (Other)
  Sender: FDA-Public Use
  Company Number: JP-ALSI-201500177

PATIENT
  Age: 64 Year
  Sex: Male

DRUGS (5)
  1. OXYGEN. [Suspect]
     Active Substance: OXYGEN
     Indication: OXYGEN SUPPLEMENTATION
     Dosage: 1.15  ONCE A MINUTE RESPIRATORY
     Route: 055
  2. MIDAZOLAM [Concomitant]
     Active Substance: MIDAZOLAM\MIDAZOLAM HYDROCHLORIDE
  3. NITROUS OXIDE. [Suspect]
     Active Substance: NITROUS OXIDE
     Indication: ANALGESIC THERAPY
     Dosage: 1.51 ONCE A MINUTE RESPIRATORY
     Route: 055
  4. D-SORBITOL [Concomitant]
  5. BUPIVACAINE [Concomitant]
     Active Substance: BUPIVACAINE

REACTIONS (4)
  - Urinary bladder rupture [None]
  - Abdominal pain [None]
  - Procedural complication [None]
  - Bladder injury [None]
